FAERS Safety Report 5397826-7 (Version None)
Quarter: 2007Q3

REPORT INFORMATION
  Report Type: 
  Country: None (occurrence: None)
  Receive Date: 20070724
  Receipt Date: 20070724
  Transmission Date: 20080115
  Serious: Yes (Other)
  Sender: FDA-Public Use
  Company Number: None

PATIENT
  Age: 49 Year
  Sex: Male
  Weight: 135.6255 kg

DRUGS (1)
  1. GLUCOPHAGE XR [Suspect]
     Indication: DIABETES MELLITUS
     Dosage: 2000 MG DAILY PO
     Route: 048
     Dates: start: 20070305, end: 20070722

REACTIONS (3)
  - ASTHENIA [None]
  - MYALGIA [None]
  - PYREXIA [None]
